FAERS Safety Report 7569671-5 (Version None)
Quarter: 2011Q2

REPORT INFORMATION
  Report Type: 
  Country: None (occurrence: None)
  Receive Date: 20110617
  Receipt Date: 20110613
  Transmission Date: 20111010
  Serious: Yes (Death, Life-Threatening)
  Sender: FDA-Public Use
  Company Number: 2011SP027841

PATIENT
  Age: 75 Year
  Sex: Male
  Weight: 38 kg

DRUGS (10)
  1. TEMODAL [Suspect]
     Indication: GLIOBLASTOMA MULTIFORME
     Dosage: 150 MG/M2;QD;IV
     Route: 042
     Dates: start: 20110421, end: 20110425
  2. FAMOTIDINE [Concomitant]
  3. VALERIN [Concomitant]
  4. ZONISAMIDE [Concomitant]
  5. PREDNISOLONE [Concomitant]
  6. BENAMBAX [Concomitant]
  7. ARTANE [Concomitant]
  8. BIOFERMIN [Concomitant]
  9. ALOSENN [Concomitant]
  10. E KEPPRA (LEVETIRACETAM) [Concomitant]

REACTIONS (3)
  - GLIOBLASTOMA MULTIFORME [None]
  - HYPOKALAEMIA [None]
  - NEOPLASM PROGRESSION [None]
